FAERS Safety Report 9358210 (Version 1)
Quarter: 2013Q2

REPORT INFORMATION
  Report Type: Spontaneous
  Country: GB (occurrence: GB)
  Receive Date: 20130620
  Receipt Date: 20130620
  Transmission Date: 20140414
  Serious: Yes (Other)
  Sender: FDA-Public Use
  Company Number: GB-009507513-1306GBR006235

PATIENT
  Age: 93 Year
  Sex: Female

DRUGS (1)
  1. ALENDRONATE SODIUM AND CHOLECALCIFEROL, MSD [Suspect]
     Indication: SPINAL FRACTURE
     Dosage: 70 MG, UNK
     Route: 048
     Dates: start: 20130516, end: 20130516

REACTIONS (2)
  - Upper gastrointestinal haemorrhage [Recovered/Resolved]
  - Oesophageal ulcer [Unknown]
